FAERS Safety Report 4416654-X (Version None)
Quarter: 2004Q2

REPORT INFORMATION
  Report Type: 
  Country: None (occurrence: None)
  Receive Date: 20040630
  Receipt Date: 20040326
  Transmission Date: 20050107
  Serious: Yes (Other)
  Sender: FDA-Public Use
  Company Number: ENTC2004-0063

PATIENT
  Age: 82 Year
  Sex: Male

DRUGS (4)
  1. STALEVO 100 [Suspect]
     Indication: PARKINSON'S DISEASE
     Dosage: 450 MG, 3 IN 1 D, ORAL
     Route: 048
     Dates: start: 20040309
  2. LISINOPRIL [Concomitant]
  3. METOPROLOL [Concomitant]
  4. ASPIRIN [Concomitant]

REACTIONS (3)
  - CONDITION AGGRAVATED [None]
  - DIFFICULTY IN WALKING [None]
  - PARKINSON'S DISEASE [None]
